FAERS Safety Report 15926056 (Version 2)
Quarter: 2019Q1

REPORT INFORMATION
  Report Type: Spontaneous
  Country: US (occurrence: US)
  Receive Date: 20190205
  Receipt Date: 20190219
  Transmission Date: 20190417
  Serious: No
  Sender: FDA-Public Use
  Company Number: US-ALLERGAN-1842199US

PATIENT
  Age: 2 Decade
  Sex: Female

DRUGS (1)
  1. BOTOX [Suspect]
     Active Substance: ONABOTULINUMTOXINA
     Indication: TORTICOLLIS
     Dosage: UNK UNK, SINGLE
     Route: 030
     Dates: start: 20180828, end: 20180828

REACTIONS (2)
  - Injection site haemorrhage [Unknown]
  - Injection site rash [Unknown]

NARRATIVE: CASE EVENT DATE: 20180828
